FAERS Safety Report 5862367-7 (Version None)
Quarter: 2008Q3

REPORT INFORMATION
  Report Type: 
  Country: None (occurrence: None)
  Receive Date: 20080828
  Receipt Date: 20080821
  Transmission Date: 20090109
  Serious: Yes (Other)
  Sender: FDA-Public Use
  Company Number: GB-JNJFOC-20080804997

PATIENT
  Sex: Male
  Weight: 67 kg

DRUGS (6)
  1. REMICADE [Suspect]
     Indication: RHEUMATOID ARTHRITIS
     Route: 042
  2. METHOTREXATE [Concomitant]
  3. CALCIUM [Concomitant]
  4. CO-DYDRAMOL [Concomitant]
  5. FOLIC ACID [Concomitant]
  6. MELOXICAM [Concomitant]

REACTIONS (2)
  - ARTHRITIS BACTERIAL [None]
  - BURSITIS [None]
